FAERS Safety Report 11582522 (Version 3)
Quarter: 2015Q4

REPORT INFORMATION
  Report Type: Spontaneous
  Country: IT (occurrence: IT)
  Receive Date: 20151001
  Receipt Date: 20151204
  Transmission Date: 20160304
  Serious: Yes (Death, Hospitalization, Other)
  Sender: FDA-Public Use
  Company Number: IT-BRISTOL-MYERS SQUIBB COMPANY-BMS-2015-064757

PATIENT
  Age: 74 Year
  Sex: Male

DRUGS (3)
  1. CETUXIMAB [Suspect]
     Active Substance: CETUXIMAB
     Indication: PRODUCT USED FOR UNKNOWN INDICATION
     Dosage: 400 MG, QCYCLE
     Route: 042
     Dates: start: 20130910
  2. IRINOTECAN HYDROCHLORIDE. [Suspect]
     Active Substance: IRINOTECAN HYDROCHLORIDE
     Indication: COLON CANCER METASTATIC
     Dosage: 400 MG, TOTAL
     Route: 042
     Dates: start: 20130910
  3. IRINOTECAN HYDROCHLORIDE. [Suspect]
     Active Substance: IRINOTECAN HYDROCHLORIDE
     Dosage: 1 DF, TOTAL
     Route: 065
     Dates: start: 20130910

REACTIONS (3)
  - Melaena [Fatal]
  - Febrile neutropenia [Fatal]
  - Anaemia [Fatal]

NARRATIVE: CASE EVENT DATE: 20130916
